FAERS Safety Report 6943997-8 (Version None)
Quarter: 2010Q3

REPORT INFORMATION
  Report Type: 
  Country: None (occurrence: None)
  Receive Date: 20100827
  Receipt Date: 20100824
  Transmission Date: 20110219
  Serious: Yes (Hospitalization, Other)
  Sender: FDA-Public Use
  Company Number: US-ASTRAZENECA-2007UW21500

PATIENT
  Age: 17262 Day
  Sex: Female
  Weight: 72.1 kg

DRUGS (23)
  1. SEROQUEL [Suspect]
     Indication: DEPRESSION
     Dosage: 200 MG - 800 MG
     Route: 048
     Dates: start: 19990301, end: 20041101
  2. SEROQUEL [Suspect]
     Indication: BIPOLAR DISORDER
     Dosage: 200 MG - 800 MG
     Route: 048
     Dates: start: 19990301, end: 20041101
  3. SEROQUEL [Suspect]
     Dosage: 200 - 800 MG
     Route: 048
     Dates: start: 20011001, end: 20040601
  4. SEROQUEL [Suspect]
     Dosage: 200 - 800 MG
     Route: 048
     Dates: start: 20011001, end: 20040601
  5. SEROQUEL [Suspect]
     Dosage: 100 - 800 MG
     Route: 048
     Dates: end: 20051026
  6. SEROQUEL [Suspect]
     Dosage: 100 - 800 MG
     Route: 048
     Dates: end: 20051026
  7. GLUCOTROL [Concomitant]
  8. REMERON [Concomitant]
  9. KLONOPIN [Concomitant]
  10. MELLARIL [Concomitant]
  11. DEPAKOTE [Concomitant]
  12. GLUCOPHAGE [Concomitant]
  13. ACCUPRIL [Concomitant]
  14. LIPITOR [Concomitant]
  15. TOPROL-XL [Concomitant]
  16. AXERT [Concomitant]
  17. NEXIUM CPDR [Concomitant]
  18. ASPIRIN [Concomitant]
  19. LEXAPRO [Concomitant]
  20. ADVAIR DISKUS 100/50 [Concomitant]
  21. ALBUTEROL [Concomitant]
  22. PROTONIX [Concomitant]
  23. IMDUR [Concomitant]

REACTIONS (43)
  - ABDOMINAL PAIN [None]
  - ACTIVITIES OF DAILY LIVING IMPAIRED [None]
  - ACUTE SINUSITIS [None]
  - ANGINA UNSTABLE [None]
  - BACK PAIN [None]
  - BLOOD CHOLESTEROL INCREASED [None]
  - BRONCHITIS [None]
  - BURSITIS [None]
  - CELLULITIS [None]
  - CHEST PAIN [None]
  - CONTUSION [None]
  - CORONARY ARTERY DISEASE [None]
  - COUGH [None]
  - DIZZINESS [None]
  - DYSFUNCTIONAL UTERINE BLEEDING [None]
  - DYSPHAGIA [None]
  - DYSPNOEA [None]
  - FATIGUE [None]
  - FEELING ABNORMAL [None]
  - GASTROOESOPHAGEAL REFLUX DISEASE [None]
  - GLYCOSURIA [None]
  - HEAD INJURY [None]
  - HYPERHIDROSIS [None]
  - HYPERLIPIDAEMIA [None]
  - HYPERSOMNIA [None]
  - INJURY [None]
  - MALAISE [None]
  - MIGRAINE [None]
  - NASOPHARYNGITIS [None]
  - NEURALGIA [None]
  - NON-CARDIAC CHEST PAIN [None]
  - OBESITY [None]
  - OESOPHAGITIS [None]
  - ORAL CANDIDIASIS [None]
  - OVERDOSE [None]
  - PAIN IN EXTREMITY [None]
  - PNEUMONIA [None]
  - RENAL PAIN [None]
  - TENDONITIS [None]
  - TYPE 2 DIABETES MELLITUS [None]
  - URINARY TRACT INFECTION [None]
  - VIRAL INFECTION [None]
  - VOMITING PROJECTILE [None]
